FAERS Safety Report 13462507 (Version 1)
Quarter: 2017Q2

REPORT INFORMATION
  Report Type: Report from Study
  Country: US (occurrence: US)
  Receive Date: 20170420
  Receipt Date: 20170420
  Transmission Date: 20170830
  Serious: Yes (Other)
  Sender: FDA-Public Use
  Company Number: US-PFIZER INC-2017169683

PATIENT
  Age: 68 Year
  Sex: Female

DRUGS (2)
  1. IBRANCE [Suspect]
     Active Substance: PALBOCICLIB
     Indication: BREAST CANCER
     Dosage: 125 MG, CYCLIC, (DAILY; 3 WEEKS ON/1 WEEK OFF)
     Route: 048
     Dates: start: 20160217
  2. IBRANCE [Suspect]
     Active Substance: PALBOCICLIB
     Dosage: 100 MG, CYCLIC, (DAILY; 3 WEEKS ON/1 WEEK OFF)
     Route: 048

REACTIONS (3)
  - Decreased appetite [Unknown]
  - Bone marrow failure [Unknown]
  - Alopecia [Unknown]
